FAERS Safety Report 6574919-X (Version None)
Quarter: 2010Q1

REPORT INFORMATION
  Report Type: 
  Country: None (occurrence: None)
  Receive Date: 20100209
  Receipt Date: 20100125
  Transmission Date: 20100710
  Serious: Yes (Life-Threatening)
  Sender: FDA-Public Use
  Company Number: FR-BAYER-201013239GPV

PATIENT
  Age: 14 Year
  Sex: Female

DRUGS (5)
  1. FLUDARA [Suspect]
     Indication: BONE MARROW TRANSPLANT
     Route: 042
     Dates: start: 20091202, end: 20091205
  2. CYCLOPHOSPHAMIDE [Suspect]
     Indication: BONE MARROW TRANSPLANT
     Route: 042
     Dates: start: 20091202, end: 20091205
  3. UROMITEXAN [Concomitant]
     Indication: BONE MARROW TRANSPLANT
  4. PERFALGAN [Concomitant]
     Indication: BONE MARROW TRANSPLANT
  5. SOLU-MEDROL [Concomitant]
     Indication: BONE MARROW TRANSPLANT

REACTIONS (4)
  - MULTI-ORGAN FAILURE [None]
  - PANCREATITIS ACUTE [None]
  - RENAL FAILURE ACUTE [None]
  - SHOCK [None]
